FAERS Safety Report 4612152-9 (Version None)
Quarter: 2005Q1

REPORT INFORMATION
  Report Type: 
  Country: None (occurrence: None)
  Receive Date: 20050308
  Receipt Date: 20041124
  Transmission Date: 20050727
  Serious: Yes (Other)
  Sender: FDA-Public Use
  Company Number: 2004UW24237

PATIENT
  Age: 75 Year
  Sex: Female
  Weight: 62.595 kg

DRUGS (5)
  1. CRESTOR [Suspect]
     Indication: BLOOD CHOLESTEROL INCREASED
     Dosage: 10 MG QD PO
     Route: 048
     Dates: start: 20040501
  2. ZIAC [Concomitant]
  3. SEREVENT [Concomitant]
  4. CLARITIN [Concomitant]
  5. ASPIRIN [Concomitant]

REACTIONS (1)
  - BLOOD CALCIUM INCREASED [None]
